FAERS Safety Report 13627288 (Version 1)
Quarter: 2017Q2

REPORT INFORMATION
  Report Type: Spontaneous
  Country: PL (occurrence: PL)
  Receive Date: 20170607
  Receipt Date: 20170607
  Transmission Date: 20170830
  Serious: Yes (Other)
  Sender: FDA-Public Use
  Company Number: PL-TEVA-774717ACC

PATIENT
  Age: 30 Year
  Sex: Female
  Weight: 47 kg

DRUGS (3)
  1. DOXORUBICIN [Suspect]
     Active Substance: DOXORUBICIN
     Indication: CONNECTIVE TISSUE NEOPLASM
     Dosage: DOSE: 30 UNIT - NOT SPECIFIED
     Route: 042
     Dates: start: 20170103, end: 20170404
  2. DACARBAZIN [Suspect]
     Active Substance: DACARBAZINE
     Indication: CONNECTIVE TISSUE NEOPLASM
     Dosage: DOSE: 300 UNIT - NOT SPECIFIED
     Route: 042
     Dates: start: 20170103, end: 20170404
  3. CYCLOPHOSPHAMIDUM [Suspect]
     Active Substance: CYCLOPHOSPHAMIDE
     Indication: CONNECTIVE TISSUE NEOPLASM
     Dosage: DOSE: 100 UNIT - NOT SPECIFIED
     Route: 042
     Dates: start: 20170103, end: 20170404

REACTIONS (1)
  - Neutropenia [Unknown]

NARRATIVE: CASE EVENT DATE: 20170502
